FAERS Safety Report 7437521-3 (Version None)
Quarter: 2011Q2

REPORT INFORMATION
  Report Type: 
  Country: None (occurrence: None)
  Receive Date: 20110421
  Receipt Date: 20110421
  Transmission Date: 20111010
  Serious: Yes (Hospitalization, Other)
  Sender: FDA-Public Use
  Company Number: None

PATIENT
  Age: 64 Year
  Sex: Female

DRUGS (8)
  1. AMPYRA [Suspect]
     Indication: MULTIPLE SCLEROSIS
     Dosage: 10 MG Q12H ORALLY
     Route: 048
     Dates: start: 20110401
  2. NORTRIPTYLINE [Concomitant]
  3. IBUPROFEN [Concomitant]
  4. ATENOLOL [Concomitant]
  5. COPAXONE [Concomitant]
  6. CARBAMAZEPINE [Concomitant]
  7. SIMVASTATIN [Concomitant]
  8. OXYBUTYNIN [Concomitant]

REACTIONS (6)
  - PAIN IN EXTREMITY [None]
  - MUSCULAR WEAKNESS [None]
  - URINARY TRACT INFECTION [None]
  - CONFUSIONAL STATE [None]
  - DRUG INEFFECTIVE [None]
  - ASTHENIA [None]
